FAERS Safety Report 5645435-4 (Version None)
Quarter: 2008Q1

REPORT INFORMATION
  Report Type: 
  Country: None (occurrence: None)
  Receive Date: 20080229
  Receipt Date: 20070301
  Transmission Date: 20080703
  Serious: No
  Sender: FDA-Public Use
  Company Number: US-BRISTOL-MYERS SQUIBB COMPANY-13696547

PATIENT

DRUGS (1)
  1. TAXOL [Suspect]

REACTIONS (2)
  - NEUROPATHY PERIPHERAL [None]
  - RASH [None]
